FAERS Safety Report 14337545 (Version 1)
Quarter: 2017Q4

REPORT INFORMATION
  Report Type: Spontaneous
  Country: GB (occurrence: FR)
  Receive Date: 20171229
  Receipt Date: 20171229
  Transmission Date: 20180321
  Serious: Yes (Hospitalization)
  Sender: FDA-Public Use
  Company Number: FR-FRESENIUS KABI-FK201711490

PATIENT

DRUGS (3)
  1. FLUOROURACIL. [Suspect]
     Active Substance: FLUOROURACIL
     Indication: SMALL INTESTINE CARCINOMA METASTATIC
     Route: 042
     Dates: start: 201408
  2. OXALIPLATIN (MANUFACTURER UNKNOWN) [Suspect]
     Active Substance: OXALIPLATIN
     Indication: SMALL INTESTINE CARCINOMA METASTATIC
     Route: 042
     Dates: start: 201408, end: 201412
  3. IRINOTECAN (MANUFACTURER UNKNOWN) [Suspect]
     Active Substance: IRINOTECAN
     Indication: SMALL INTESTINE CARCINOMA METASTATIC
     Route: 042
     Dates: start: 20150219

REACTIONS (4)
  - Starvation [Recovering/Resolving]
  - General physical health deterioration [Recovering/Resolving]
  - Anaemia [Recovering/Resolving]
  - Neuropathy peripheral [Unknown]

NARRATIVE: CASE EVENT DATE: 2014
